FAERS Safety Report 15602878 (Version 2)
Quarter: 2018Q4

REPORT INFORMATION
  Report Type: Report from Study
  Country: FR (occurrence: FR)
  Receive Date: 20181109
  Receipt Date: 20181123
  Transmission Date: 20190205
  Serious: Yes (Hospitalization)
  Sender: FDA-Public Use
  Company Number: FR-AMGEN-FRACT2018151885

PATIENT
  Age: 66 Year
  Sex: Female
  Weight: 84 kg

DRUGS (19)
  1. PANITUMUMAB [Suspect]
     Active Substance: PANITUMUMAB
     Indication: COLORECTAL CANCER
     Dosage: 540 MG, UNK
     Route: 042
     Dates: start: 20180921
  2. LOVENOX [Concomitant]
     Active Substance: ENOXAPARIN SODIUM
  3. SODIUM BICARBONATE. [Concomitant]
     Active Substance: SODIUM BICARBONATE
  4. LASILIX [Concomitant]
     Active Substance: FUROSEMIDE
     Dosage: UNK
     Dates: start: 20181101
  5. IRINOTECAN [Suspect]
     Active Substance: IRINOTECAN
     Indication: COLORECTAL CANCER
     Dosage: 300 MG, UNK
     Route: 042
     Dates: start: 20180921
  6. OXALIPLATIN. [Suspect]
     Active Substance: OXALIPLATIN
     Indication: COLORECTAL CANCER
     Dosage: 170 MG, UNK
     Route: 042
     Dates: start: 20180921
  7. LERCAN [Concomitant]
     Active Substance: LERCANIDIPINE
     Dosage: 20 MG, QD
  8. INNOHEP [Concomitant]
     Active Substance: TINZAPARIN SODIUM
     Indication: ATRIAL FIBRILLATION
  9. NEBIVOLOL. [Concomitant]
     Active Substance: NEBIVOLOL
  10. LEVOFOLINATE [Suspect]
     Active Substance: LEVOLEUCOVORIN CALCIUM
     Indication: COLORECTAL CANCER
     Dosage: 400 MG, UNK
     Route: 042
     Dates: start: 20180921
  11. INNOHEP [Concomitant]
     Active Substance: TINZAPARIN SODIUM
     Indication: ARRHYTHMIA
  12. ENALAPRIL [Concomitant]
     Active Substance: ENALAPRIL
  13. 5 FU [Suspect]
     Active Substance: FLUOROURACIL
     Indication: COLORECTAL CANCER
     Dosage: 4500 MG, UNK
     Route: 042
     Dates: start: 20180921
  14. CORENITEC [Concomitant]
     Active Substance: ENALAPRIL\HYDROCHLOROTHIAZIDE
     Dosage: UNK (20MG/5 MG), QD
  15. LERCANIDIPINE [Concomitant]
     Active Substance: LERCANIDIPINE
  16. FLECAINE [Concomitant]
     Active Substance: FLECAINIDE
  17. IRON [Concomitant]
     Active Substance: IRON
     Indication: IRON DEFICIENCY
     Dosage: UNK
     Route: 042
     Dates: start: 20181016
  18. NAROPEINE [Concomitant]
     Active Substance: ROPIVACAINE HYDROCHLORIDE
  19. HEPARIN [Concomitant]
     Active Substance: HEPARIN SODIUM

REACTIONS (2)
  - Colonic fistula [Not Recovered/Not Resolved]
  - Medical device site abscess [Not Recovered/Not Resolved]

NARRATIVE: CASE EVENT DATE: 20181022
